FAERS Safety Report 8586294-X (Version None)
Quarter: 2012Q3

REPORT INFORMATION
  Report Type: 
  Country: None (occurrence: None)
  Receive Date: 20120730
  Receipt Date: 20120718
  Transmission Date: 20120928
  Serious: Yes (Other)
  Sender: FDA-Public Use
  Company Number: MPS1-1000742

PATIENT
  Age: 34 Year
  Sex: Male

DRUGS (1)
  1. ALDURAZYME [Suspect]
     Indication: MUCOPOLYSACCHARIDOSIS I
     Dosage: 0.58 MG/KG, INTRAVENOUS
     Route: 042
     Dates: start: 20040101

REACTIONS (1)
  - ARRHYTHMIA [None]
